FAERS Safety Report 8760964 (Version 1)
Quarter: 2012Q4

REPORT INFORMATION
  Report Type: 
  Country: NZ (occurrence: NZ)
  Receive Date: 20120830
  Receipt Date: 20120830
  Transmission Date: 20130627
  Serious: Yes (Other)
  Sender: FDA-Public Use
  Company Number: NZ-009507513-1208NZL009729

PATIENT

DRUGS (1)
  1. AVANZA [Suspect]
     Dosage: 45 mg, qd
     Route: 048

REACTIONS (1)
  - Blindness [Not Recovered/Not Resolved]
